FAERS Safety Report 15761454 (Version 1)
Quarter: 2018Q4

REPORT INFORMATION
  Report Type: Spontaneous
  Country: US (occurrence: US)
  Receive Date: 20181226
  Receipt Date: 20181226
  Transmission Date: 20190205
  Serious: Yes (Hospitalization)
  Sender: FDA-Public Use
  Company Number: US-MYLANLABS-2018M1093899

PATIENT
  Age: 15 Year
  Sex: Female

DRUGS (3)
  1. HEPARIN [Suspect]
     Active Substance: HEPARIN SODIUM
     Indication: CEREBRAL VENOUS THROMBOSIS
     Route: 042
  2. LOVENOX [Suspect]
     Active Substance: ENOXAPARIN SODIUM
     Indication: CEREBRAL VENOUS THROMBOSIS
     Dosage: 100 MILLIGRAM
     Route: 048
  3. ACETAZOLAMIDE. [Concomitant]
     Active Substance: ACETAZOLAMIDE
     Indication: CEREBRAL VENOUS THROMBOSIS
     Dosage: 250 MILLIGRAM
     Route: 048

REACTIONS (3)
  - Optic disc haemorrhage [Recovering/Resolving]
  - Gliosis [Recovering/Resolving]
  - Papilloedema [Recovered/Resolved]
